FAERS Safety Report 6924858-7 (Version None)
Quarter: 2010Q3

REPORT INFORMATION
  Report Type: 
  Country: None (occurrence: None)
  Receive Date: 20100816
  Receipt Date: 20100805
  Transmission Date: 20110219
  Serious: Yes (Hospitalization)
  Sender: FDA-Public Use
  Company Number: AR-ASTRAZENECA-2010SE36680

PATIENT
  Age: 60 Year
  Sex: Male

DRUGS (1)
  1. ZOLADEX [Suspect]
     Indication: PROSTATE CANCER
     Route: 033
     Dates: start: 20100601, end: 20100801

REACTIONS (2)
  - ACUTE ABDOMEN [None]
  - INCORRECT ROUTE OF DRUG ADMINISTRATION [None]
